FAERS Safety Report 11128487 (Version 1)
Quarter: 2015Q2

REPORT INFORMATION
  Report Type: Spontaneous
  Country: US (occurrence: US)
  Receive Date: 20150521
  Receipt Date: 20150521
  Transmission Date: 20150821
  Serious: Yes (Other)
  Sender: FDA-Public Use
  Company Number: US-RB PHARMACEUTICALS LIMITED-RB-079422-2015

PATIENT
  Age: 28 Year
  Sex: Female

DRUGS (3)
  1. SUBOXONE [Suspect]
     Active Substance: BUPRENORPHINE HYDROCHLORIDE\NALOXONE HYDROCHLORIDE
     Dosage: LOWER DOSE
     Route: 065
  2. HEROIN [Suspect]
     Active Substance: DIACETYLMORPHINE
     Indication: DRUG DEPENDENCE
     Dosage: UNK
     Route: 065
  3. SUBOXONE [Suspect]
     Active Substance: BUPRENORPHINE HYDROCHLORIDE\NALOXONE HYDROCHLORIDE
     Indication: DRUG DEPENDENCE
     Dosage: UNK
     Route: 065

REACTIONS (9)
  - Drug dependence [Recovered/Resolved]
  - Flat affect [Unknown]
  - Loss of consciousness [Recovered/Resolved]
  - Headache [Unknown]
  - Somnolence [Unknown]
  - Adverse event [Unknown]
  - Nausea [Recovered/Resolved]
  - Drug abuse [Recovered/Resolved]
  - Asthenia [Unknown]
